FAERS Safety Report 8302491-2 (Version None)
Quarter: 2012Q2

REPORT INFORMATION
  Report Type: 
  Country: None (occurrence: None)
  Receive Date: 20120420
  Receipt Date: 20120409
  Transmission Date: 20120825
  Serious: Yes (Other)
  Sender: FDA-Public Use
  Company Number: JP-BRISTOL-MYERS SQUIBB COMPANY-16510182

PATIENT
  Age: 61 Year
  Sex: Male
  Weight: 50 kg

DRUGS (2)
  1. CISPLATIN [Suspect]
     Indication: LUNG SQUAMOUS CELL CARCINOMA STAGE UNSPECIFIED
  2. DOCETAXEL [Suspect]
     Indication: LUNG SQUAMOUS CELL CARCINOMA STAGE UNSPECIFIED

REACTIONS (4)
  - WEIGHT DECREASED [None]
  - VOMITING [None]
  - NAUSEA [None]
  - SUPERIOR MESENTERIC ARTERY SYNDROME [None]
